FAERS Safety Report 8914985 (Version 1)
Quarter: 2012Q4

REPORT INFORMATION
  Report Type: 
  Country: US (occurrence: US)
  Receive Date: 20121119
  Receipt Date: 20121119
  Transmission Date: 20130627
  Serious: No
  Sender: FDA-Public Use
  Company Number: US-BAYER-2012-120810

PATIENT
  Age: 27 Year
  Sex: Female
  Weight: 109 kg

DRUGS (4)
  1. ALEVE CAPLET/TABLET,MIDOL EXTENDED RELIEF CAPLET [Suspect]
     Route: 048
  2. CLONAZEPAM [Concomitant]
  3. CELEXA [Concomitant]
  4. PAMPRIN [Concomitant]
     Dosage: 2 DF, UNK

REACTIONS (1)
  - Nausea [Recovered/Resolved]
